FAERS Safety Report 18990012 (Version 2)
Quarter: 2021Q2

REPORT INFORMATION
  Report Type: Report from Study
  Country: DE (occurrence: DE)
  Receive Date: 20210310
  Receipt Date: 20210410
  Transmission Date: 20210717
  Serious: Yes (Hospitalization)
  Sender: FDA-Public Use
  Company Number: DE-BRISTOL-MYERS SQUIBB COMPANY-BMS-2021-021399

PATIENT
  Age: 74 Year
  Sex: Female

DRUGS (4)
  1. NIVOLUMAB [Suspect]
     Active Substance: NIVOLUMAB
     Indication: NON-HODGKIN^S LYMPHOMA
     Dosage: 180 MG, 1X
     Route: 042
     Dates: start: 20210218
  2. OXALIPLATIN. [Suspect]
     Active Substance: OXALIPLATIN
     Indication: NON-HODGKIN^S LYMPHOMA
     Dosage: 124.50 MILLIGRAM, 1XCYCLE (1X FOR 1 DAY)
     Route: 042
     Dates: start: 20210219, end: 20210219
  3. RITUXIMAB. [Suspect]
     Active Substance: RITUXIMAB
     Indication: NON-HODGKIN^S LYMPHOMA
     Dosage: 622.5 MILLIGRAM, 1XCYCLE (1X FOR 1 DAY)
     Route: 042
     Dates: start: 20210218, end: 20210218
  4. GEMCITABINE HYDROCHLORIDE. [Suspect]
     Active Substance: GEMCITABINE HYDROCHLORIDE
     Indication: NON-HODGKIN^S LYMPHOMA
     Dosage: 1245.0 MILLIGRAM, 1XCYCLE (1X FOR 1 DAY)
     Route: 042
     Dates: start: 20210219, end: 20210219

REACTIONS (1)
  - General physical health deterioration [Unknown]

NARRATIVE: CASE EVENT DATE: 20210302
